FAERS Safety Report 11825926 (Version 1)
Quarter: 2015Q4

REPORT INFORMATION
  Report Type: Spontaneous
  Country: US (occurrence: US)
  Receive Date: 20151211
  Receipt Date: 20151211
  Transmission Date: 20160305
  Serious: Yes (Other)
  Sender: FDA-Public Use
  Company Number: US-TARO PHARMACEUTICALS USA.,INC-2015SUN02268

PATIENT
  Sex: Male

DRUGS (1)
  1. WARFARIN [Suspect]
     Active Substance: WARFARIN
     Indication: PRODUCT USED FOR UNKNOWN INDICATION
     Dosage: UNK, STARTED 6 MONTHS PRIOR
     Route: 065

REACTIONS (3)
  - Haematoma [Recovered/Resolved]
  - Carpal tunnel syndrome [Recovered/Resolved]
  - International normalised ratio increased [Unknown]
